FAERS Safety Report 9683382 (Version 1)
Quarter: 2013Q4

REPORT INFORMATION
  Report Type: Spontaneous
  Country: US (occurrence: US)
  Receive Date: 20131112
  Receipt Date: 20131112
  Transmission Date: 20140711
  Serious: No
  Sender: FDA-Public Use
  Company Number: US-PFIZER INC-2013319634

PATIENT
  Age: 66 Year
  Sex: Female
  Weight: 78.9 kg

DRUGS (4)
  1. LYRICA [Suspect]
     Indication: NEUROPATHY PERIPHERAL
     Dosage: 50 MG, 3X/DAY
     Route: 048
     Dates: start: 201305, end: 201308
  2. LYRICA [Suspect]
     Indication: RADICULOPATHY
     Dosage: 50 MG, 2X/DAY
     Route: 048
     Dates: start: 201308, end: 201308
  3. LYRICA [Suspect]
     Dosage: 50 MG, 1X/DAY
     Route: 048
     Dates: start: 201308, end: 20131104
  4. AMITRIPTYLINE [Concomitant]
     Dosage: UNK, AS NEEDED

REACTIONS (5)
  - Off label use [Unknown]
  - Weight increased [Unknown]
  - Joint swelling [Not Recovered/Not Resolved]
  - Local swelling [Not Recovered/Not Resolved]
  - Pain [Not Recovered/Not Resolved]
